FAERS Safety Report 24105099 (Version 4)
Quarter: 2024Q4

REPORT INFORMATION
  Report Type: Spontaneous
  Country: US (occurrence: US)
  Receive Date: 20240717
  Receipt Date: 20241017
  Transmission Date: 20250115
  Serious: No
  Sender: NOVARTIS
  Company Number: US-002147023-NVSC2024US145642

PATIENT
  Age: 26 Year
  Sex: Male

DRUGS (1)
  1. COSENTYX [Suspect]
     Active Substance: SECUKINUMAB
     Indication: Hidradenitis
     Dosage: 300 MG, QW (INJECTION)
     Route: 065
     Dates: start: 20240701

REACTIONS (6)
  - Complication of device insertion [Unknown]
  - Device malfunction [Unknown]
  - Needle issue [Unknown]
  - Device deployment issue [Unknown]
  - Device leakage [Unknown]
  - Accidental exposure to product [Unknown]

NARRATIVE: CASE EVENT DATE: 20240708
